FAERS Safety Report 4564561-4 (Version None)
Quarter: 2005Q1

REPORT INFORMATION
  Report Type: 
  Country: None (occurrence: None)
  Receive Date: 20050126
  Receipt Date: 20050110
  Transmission Date: 20050727
  Serious: Yes (Other)
  Sender: FDA-Public Use
  Company Number: GBWYE367325JAN05

PATIENT
  Sex: Female

DRUGS (1)
  1. LODINE XL [Suspect]
     Indication: BACK PAIN
     Route: 048
     Dates: start: 20040901

REACTIONS (3)
  - FEELING ABNORMAL [None]
  - PERNICIOUS ANAEMIA [None]
  - VITAMIN B12 DEFICIENCY [None]
